FAERS Safety Report 6423669-9 (Version None)
Quarter: 2009Q4

REPORT INFORMATION
  Report Type: 
  Country: None (occurrence: None)
  Receive Date: 20091102
  Receipt Date: 20091028
  Transmission Date: 20100525
  Serious: Yes (Disabling, Other)
  Sender: FDA-Public Use
  Company Number: US-MERCK-0712USA08019

PATIENT
  Age: 48 Year
  Sex: Female

DRUGS (3)
  1. FOSAMAX [Suspect]
     Indication: OSTEOPOROSIS
     Route: 048
     Dates: start: 20050801, end: 20070218
  2. SOMA [Concomitant]
     Indication: MUSCLE RELAXANT THERAPY
     Route: 065
     Dates: start: 19910101
  3. PROZAC [Concomitant]
     Indication: DEPRESSION
     Route: 065
     Dates: start: 20060101

REACTIONS (20)
  - ADVERSE DRUG REACTION [None]
  - ANXIETY [None]
  - ARTHROPATHY [None]
  - DENTAL CARIES [None]
  - DEPRESSION [None]
  - GINGIVAL DISORDER [None]
  - HYPERTENSION [None]
  - IMPAIRED HEALING [None]
  - JAW DISORDER [None]
  - MOUTH CYST [None]
  - OSTEOMYELITIS [None]
  - OSTEONECROSIS [None]
  - PAIN [None]
  - PANIC ATTACK [None]
  - POST-TRAUMATIC STRESS DISORDER [None]
  - SENSITIVITY OF TEETH [None]
  - TEMPOROMANDIBULAR JOINT SYNDROME [None]
  - TREMOR [None]
  - TRIGEMINAL NEURALGIA [None]
  - WEIGHT DECREASED [None]
